FAERS Safety Report 25217111 (Version 2)
Quarter: 2025Q3

REPORT INFORMATION
  Report Type: Spontaneous
  Country: EU (occurrence: EU)
  Receive Date: 20250419
  Receipt Date: 20250808
  Transmission Date: 20251021
  Serious: Yes (Other)
  Sender: Vantive US Healthcare
  Company Number: EU-VANTIVE-2025VAN001778

PATIENT
  Age: 74 Year
  Sex: Male

DRUGS (2)
  1. EXTRANEAL [Suspect]
     Active Substance: CALCIUM CHLORIDE\ICODEXTRIN\MAGNESIUM CHLORIDE\SODIUM CHLORIDE\SODIUM LACTATE
     Route: 033
     Dates: start: 20221020
  2. CALCIUM CL\DEXTROSE\MAGNESIUM CL\SODIUM BICAR\SODIUM CL\SODIUM LACT [Suspect]
     Active Substance: CALCIUM CHLORIDE\DEXTROSE MONOHYDRATE\MAGNESIUM CHLORIDE\SODIUM BICARBONATE\SODIUM CHLORIDE\SODIUM L
     Route: 033
     Dates: start: 20221020

REACTIONS (12)
  - Mycobacterium chelonae infection [Unknown]
  - Catheter site infection [Unknown]
  - Catheter site erythema [Unknown]
  - Catheter site discharge [Unknown]
  - Application site irritation [Unknown]
  - Skin fragility [Recovered/Resolved]
  - Granuloma [Unknown]
  - Granuloma [Unknown]
  - Staphylococcal infection [Unknown]
  - Abdominal wall disorder [Recovered/Resolved]
  - Catheter site granuloma [Recovered/Resolved]
  - Catheter site erythema [Recovered/Resolved]

NARRATIVE: CASE EVENT DATE: 20240403
